FAERS Safety Report 5590306-5 (Version None)
Quarter: 2008Q1

REPORT INFORMATION
  Report Type: 
  Country: None (occurrence: None)
  Receive Date: 20080114
  Receipt Date: 20080107
  Transmission Date: 20080703
  Serious: Yes (Hospitalization)
  Sender: FDA-Public Use
  Company Number: US-ASTRAZENECA-2007UW27782

PATIENT
  Age: 795 Week
  Sex: Female

DRUGS (5)
  1. SEROQUEL [Suspect]
     Indication: BIPOLAR DISORDER
     Route: 048
  2. NORVASC [Concomitant]
     Route: 048
  3. LITHIUM CARBONATE [Concomitant]
     Route: 048
  4. LAMICTAL [Concomitant]
  5. CONCERTA [Concomitant]
     Route: 048

REACTIONS (2)
  - PULMONARY EMBOLISM [None]
  - PULMONARY HYPERTENSION [None]
